FAERS Safety Report 4971361-X (Version None)
Quarter: 2006Q2

REPORT INFORMATION
  Report Type: 
  Country: None (occurrence: None)
  Receive Date: 20060406
  Receipt Date: 20060327
  Transmission Date: 20061013
  Serious: Yes (Other)
  Sender: FDA-Public Use
  Company Number: 2006042236

PATIENT
  Age: 61 Year
  Sex: Female
  Weight: 75 kg

DRUGS (2)
  1. DOXAZOSIN (DOXAZOSIN) [Suspect]
     Indication: HYPERTENSION
     Dosage: 8 MG (8 MG, DAILY, INTERVAL: EVERY DAY), ORAL
     Route: 048
     Dates: start: 20050816
  2. FELODIPINE [Concomitant]

REACTIONS (1)
  - RAYNAUD'S PHENOMENON [None]
